FAERS Safety Report 17534246 (Version 3)
Quarter: 2020Q2

REPORT INFORMATION
  Report Type: Spontaneous
  Country: GB (occurrence: GB)
  Receive Date: 20200312
  Receipt Date: 20200508
  Transmission Date: 20200713
  Serious: Yes (Hospitalization)
  Sender: FDA-Public Use
  Company Number: GB-NOVOPROD-716525

PATIENT
  Age: 3 Year
  Sex: Female

DRUGS (3)
  1. HYDROCORTISONE. [Concomitant]
     Active Substance: HYDROCORTISONE
     Indication: HYPOPITUITARISM
     Dosage: UNK
     Route: 065
  2. NORDITROPIN [Suspect]
     Active Substance: SOMATROPIN
     Indication: GROWTH HORMONE DEFICIENCY
     Dosage: 0.5 MG, QD (AS DIRECTED)
     Route: 058
  3. LEVOTHYROXINE SODIUM;LIOTHYRONINE;POTASSIUM IODIDE [Concomitant]
     Indication: HYPOPITUITARISM
     Dosage: UNK
     Route: 065

REACTIONS (2)
  - Cerebral palsy [Unknown]
  - Sepsis [Unknown]
